FAERS Safety Report 7551394-X (Version None)
Quarter: 2011Q2

REPORT INFORMATION
  Report Type: 
  Country: None (occurrence: None)
  Receive Date: 20110616
  Receipt Date: 20110601
  Transmission Date: 20111010
  Serious: Yes (Hospitalization, Other)
  Sender: FDA-Public Use
  Company Number: US-BAYER-201022672NA

PATIENT
  Age: 27 Year
  Sex: Female
  Weight: 88.435 kg

DRUGS (8)
  1. ROBAXIN [Concomitant]
     Dosage: UNK
     Dates: start: 20090101
  2. YAZ [Suspect]
     Indication: ORAL CONTRACEPTION
     Route: 048
  3. ALBUTEROL SULFATE AUTOHALER [Concomitant]
     Indication: ASTHMA
     Dosage: UNK
     Dates: start: 19900101, end: 20100101
  4. ST. JOHN'S WORT [Concomitant]
     Dosage: UNK
     Dates: start: 20080101
  5. VITAMIN TAB [Concomitant]
     Dosage: UNK
     Dates: start: 20000101, end: 20100101
  6. NORCO [Concomitant]
     Dosage: UNK
     Dates: start: 20090101
  7. NAPROXEN (ALEVE) [Concomitant]
     Dosage: UNK UNK, PRN
  8. PREDNISONE [Concomitant]
     Indication: PAIN
     Dosage: UNK
     Dates: start: 20090810, end: 20090817

REACTIONS (2)
  - DEEP VEIN THROMBOSIS [None]
  - PULMONARY EMBOLISM [None]
